FAERS Safety Report 22634768 (Version 1)
Quarter: 2023Q2

REPORT INFORMATION
  Report Type: Spontaneous
  Country: US (occurrence: None)
  Receive Date: 20230620
  Receipt Date: 20230620
  Transmission Date: 20230722
  Serious: No
  Sender: FDA-Public Use
  Company Number: None

PATIENT
  Sex: Female

DRUGS (12)
  1. IBRANCE [Suspect]
     Active Substance: PALBOCICLIB
     Indication: Breast cancer female
     Dosage: OTHER QUANTITY : 1T AM;?FREQUENCY : DAILY;?OTHER ROUTE : PO D1-21 7D OFF;?
     Route: 050
  2. ADVIL [Concomitant]
     Active Substance: IBUPROFEN
  3. LORATADINE [Concomitant]
  4. ERYTHROMYCIN [Concomitant]
  5. FASLODEX [Concomitant]
     Active Substance: FULVESTRANT
  6. IPRATROPIUM [Concomitant]
  7. LIDOCAINE [Concomitant]
  8. PEPCID [Concomitant]
     Active Substance: FAMOTIDINE
  9. SUBOXONE [Concomitant]
     Active Substance: BUPRENORPHINE HYDROCHLORIDE\NALOXONE HYDROCHLORIDE
  10. SYMBICORT [Concomitant]
     Active Substance: BUDESONIDE\FORMOTEROL FUMARATE DIHYDRATE
  11. TRAZODONE [Concomitant]
     Active Substance: TRAZODONE HYDROCHLORIDE
  12. ZOFRAN [Concomitant]
     Active Substance: ONDANSETRON HYDROCHLORIDE

REACTIONS (1)
  - Pancytopenia [None]
